FAERS Safety Report 6017155-8 (Version None)
Quarter: 2008Q4

REPORT INFORMATION
  Report Type: 
  Country: None (occurrence: None)
  Receive Date: 20081223
  Receipt Date: 20081211
  Transmission Date: 20090506
  Serious: Yes (Hospitalization)
  Sender: FDA-Public Use
  Company Number: US-JNJFOC-20081006937

PATIENT
  Sex: Female
  Weight: 68.04 kg

DRUGS (8)
  1. REMICADE [Suspect]
     Indication: DRUG USE FOR UNKNOWN INDICATION
     Route: 042
  2. SINGULAIR [Concomitant]
     Indication: ASTHMA
     Dosage: 10 YEARS
  3. RHINOCORT [Concomitant]
     Indication: SINUSITIS
     Dosage: 10 YEARS
  4. LEVOXYL [Concomitant]
     Indication: THYROID DISORDER
     Dosage: 20-25 YEARS
  5. ZOLOFT [Concomitant]
     Indication: DEPRESSION
     Dosage: 10 YEARS
  6. DETROL [Concomitant]
     Indication: HYPERTONIC BLADDER
  7. PREDNISONE TAB [Concomitant]
     Dosage: 3-4 YEARS
  8. HUMIRA [Concomitant]

REACTIONS (2)
  - FACIAL PALSY [None]
  - INTERSTITIAL LUNG DISEASE [None]
